FAERS Safety Report 5129794-7 (Version None)
Quarter: 2006Q4

REPORT INFORMATION
  Report Type: 
  Country: None (occurrence: None)
  Receive Date: 20061018
  Receipt Date: 20051230
  Transmission Date: 20070319
  Serious: Yes (Death, Hospitalization)
  Sender: FDA-Public Use
  Company Number: US-SANOFI-SYNTHELABO-A03200600021

PATIENT
  Sex: Female
  Weight: 86.17 kg

DRUGS (13)
  1. PROMETHAZINE [Concomitant]
     Route: 048
  2. NITROQUICK [Concomitant]
     Route: 060
  3. ZOCOR [Concomitant]
     Route: 048
  4. VICODIN [Concomitant]
     Route: 048
  5. TOPROL-XL [Concomitant]
     Route: 048
  6. LASIX [Concomitant]
     Route: 048
  7. PACERONE [Concomitant]
     Route: 048
  8. ASPIRIN [Concomitant]
     Route: 048
  9. ATIVAN [Concomitant]
     Route: 048
  10. PROTONIX [Concomitant]
     Route: 048
  11. SYNTHROID [Concomitant]
     Route: 048
  12. BENTYL [Concomitant]
     Route: 048
  13. PLAVIX [Suspect]
     Indication: DRUG USE FOR UNKNOWN INDICATION
     Route: 048

REACTIONS (1)
  - LEUKAEMIA [None]
